FAERS Safety Report 22049167 (Version 2)
Quarter: 2023Q1

REPORT INFORMATION
  Report Type: Spontaneous
  Country: US (occurrence: US)
  Receive Date: 20230301
  Receipt Date: 20230307
  Transmission Date: 20230418
  Serious: No
  Sender: FDA-Public Use
  Company Number: US-002147023-NVSC2023US045064

PATIENT
  Age: 60 Year
  Sex: Male
  Weight: 64.41 kg

DRUGS (2)
  1. COSENTYX [Suspect]
     Active Substance: SECUKINUMAB
     Indication: Ankylosing spondylitis
     Dosage: 150 MG, QMO
     Route: 030
     Dates: start: 20220404
  2. COSENTYX [Suspect]
     Active Substance: SECUKINUMAB
     Dosage: UNK
     Route: 065
     Dates: start: 20230127

REACTIONS (5)
  - Injection site discolouration [Recovering/Resolving]
  - Injection site hypoaesthesia [Recovering/Resolving]
  - Injection site hypersensitivity [Unknown]
  - Injection site pruritus [Recovering/Resolving]
  - Incorrect route of product administration [Unknown]

NARRATIVE: CASE EVENT DATE: 20230201
